FAERS Safety Report 17479490 (Version 8)
Quarter: 2020Q3

REPORT INFORMATION
  Report Type: Spontaneous
  Country: US (occurrence: US)
  Receive Date: 20200228
  Receipt Date: 20200713
  Transmission Date: 20201102
  Serious: Yes (Hospitalization, Other)
  Sender: FDA-Public Use
  Company Number: NVSC2020US051429

PATIENT
  Sex: Female

DRUGS (2)
  1. BEOVU [Suspect]
     Active Substance: BROLUCIZUMAB-DBLL
     Dosage: 6 MG, QMO
     Route: 047
     Dates: start: 20200115
  2. BEOVU [Suspect]
     Active Substance: BROLUCIZUMAB-DBLL
     Indication: PRODUCT USED FOR UNKNOWN INDICATION
     Dosage: 6 MG, QMO
     Route: 047
     Dates: start: 20191204

REACTIONS (8)
  - Retinal artery occlusion [Unknown]
  - Retinal vasculitis [Unknown]
  - Vitritis [Unknown]
  - Blindness [Recovering/Resolving]
  - Drug ineffective [Unknown]
  - Keratic precipitates [Unknown]
  - Retinal vascular occlusion [Unknown]
  - Anterior chamber cell [Unknown]
